FAERS Safety Report 10231472 (Version 1)
Quarter: 2014Q2

REPORT INFORMATION
  Report Type: Report from Study
  Country: FR (occurrence: FR)
  Receive Date: 20140611
  Receipt Date: 20140611
  Transmission Date: 20141212
  Serious: Yes (Death, Other)
  Sender: FDA-Public Use
  Company Number: FR-CELGENEUS-056-21880-14060059

PATIENT
  Sex: Female
  Weight: 52.7 kg

DRUGS (3)
  1. REVLIMID [Suspect]
     Indication: PLASMA CELL MYELOMA
     Route: 048
     Dates: start: 20140506, end: 20140517
  2. MLN9708/PLACEBO [Suspect]
     Indication: PLASMA CELL MYELOMA
     Route: 048
     Dates: start: 20140506, end: 20140513
  3. DEXAMETHASONE [Suspect]
     Indication: PLASMA CELL MYELOMA
     Route: 048
     Dates: start: 20140506, end: 20140513

REACTIONS (3)
  - Sepsis [Fatal]
  - Pancytopenia [Fatal]
  - Skin lesion [Fatal]
